FAERS Safety Report 7333389-4 (Version None)
Quarter: 2011Q1

REPORT INFORMATION
  Report Type: 
  Country: None (occurrence: None)
  Receive Date: 20110304
  Receipt Date: 20110208
  Transmission Date: 20110831
  Serious: No
  Sender: FDA-Public Use
  Company Number: US-B.I. PHARMACEUTICALS,INC./RIDGEFIELD-2011-BP-04489BP

PATIENT
  Sex: Female

DRUGS (6)
  1. POTASSIUM [Concomitant]
     Indication: SUPPLEMENTATION THERAPY
  2. LACTAID [Suspect]
     Indication: MILK ALLERGY
     Dates: start: 20110202, end: 20110202
  3. LIPITOR [Concomitant]
     Indication: BLOOD CHOLESTEROL INCREASED
  4. PRADAXA [Suspect]
     Indication: ATRIAL FIBRILLATION
     Dosage: 300 MG
     Route: 048
     Dates: start: 20110101
  5. MEDICATION NOT FURTHER SPECIFIED [Concomitant]
     Indication: HYPERTENSION
  6. MEDICATION NOT FURTHER SPECIFIED [Concomitant]
     Indication: FLUID RETENTION

REACTIONS (2)
  - HYPERSENSITIVITY [None]
  - DYSPNOEA [None]
